FAERS Safety Report 5928014-0 (Version None)
Quarter: 2008Q4

REPORT INFORMATION
  Report Type: 
  Country: None (occurrence: None)
  Receive Date: 20081022
  Receipt Date: 20081022
  Transmission Date: 20090506
  Serious: Yes (Hospitalization)
  Sender: FDA-Public Use
  Company Number: None

PATIENT
  Sex: Female
  Weight: 102.51 kg

DRUGS (2)
  1. CARBOPLATIN [Suspect]
     Dosage: 523 MG
     Dates: end: 20081015
  2. TAXOL [Suspect]
     Dosage: 350 MG
     Dates: end: 20081015

REACTIONS (6)
  - BLOOD PRESSURE DECREASED [None]
  - DRUG HYPERSENSITIVITY [None]
  - DYSPNOEA [None]
  - FEELING HOT [None]
  - FLUSHING [None]
  - HEART RATE INCREASED [None]
